FAERS Safety Report 18971113 (Version 1)
Quarter: 2021Q1

REPORT INFORMATION
  Report Type: Spontaneous
  Country: US (occurrence: US)
  Receive Date: 20210305
  Receipt Date: 20210305
  Transmission Date: 20210420
  Serious: Yes (Hospitalization, Other)
  Sender: FDA-Public Use
  Company Number: US-ALKEM LABORATORIES LIMITED-US-ALKEM-2021-00969

PATIENT
  Age: 63 Year
  Sex: Female

DRUGS (3)
  1. MYCOPHENOLATE MOFETIL. [Suspect]
     Active Substance: MYCOPHENOLATE MOFETIL
     Indication: PLEUROPERICARDITIS
     Dosage: UNK
     Route: 065
  2. PREDNISONE. [Suspect]
     Active Substance: PREDNISONE
     Indication: PLEUROPERICARDITIS
     Dosage: UNK
     Route: 065
  3. ITRACONAZOLE. [Suspect]
     Active Substance: ITRACONAZOLE
     Indication: PRODUCT USED FOR UNKNOWN INDICATION
     Dosage: UNK
     Route: 065

REACTIONS (10)
  - Anaemia macrocytic [Unknown]
  - Pulmonary embolism [Unknown]
  - Drug ineffective [Unknown]
  - Thrombocytopenia [Unknown]
  - Cushingoid [Unknown]
  - Histoplasmosis disseminated [Unknown]
  - Meningitis histoplasma [Unknown]
  - Mouth ulceration [Unknown]
  - Conjunctival hyperaemia [Unknown]
  - Papule [Unknown]
